FAERS Safety Report 11006963 (Version 2)
Quarter: 2016Q2

REPORT INFORMATION
  Report Type: Spontaneous
  Country: US (occurrence: US)
  Receive Date: 20150409
  Receipt Date: 20160415
  Transmission Date: 20160815
  Serious: No
  Sender: FDA-Public Use
  Company Number: US-ALLERGAN-1504279US

PATIENT
  Age: 49 Year
  Weight: 61.2 kg

DRUGS (4)
  1. CALCIUM [Concomitant]
     Active Substance: CALCIUM
     Indication: ROUTINE HEALTH MAINTENANCE
     Dosage: UNK UNK, QD
     Route: 048
  2. VITAMINS NOS [Concomitant]
     Active Substance: VITAMINS
     Indication: ROUTINE HEALTH MAINTENANCE
     Dosage: UNK, QD
     Route: 048
  3. LATISSE [Suspect]
     Active Substance: BIMATOPROST
     Indication: GROWTH OF EYELASHES
     Dosage: 2 GTT, QHS
     Route: 061
     Dates: start: 20141002, end: 20150304
  4. TRETINOIN. [Concomitant]
     Active Substance: TRETINOIN
     Indication: PHOTODERMATOSIS
     Dosage: UNK UNK, QD
     Route: 061
     Dates: start: 201312

REACTIONS (1)
  - Asthenopia [Recovered/Resolved]

NARRATIVE: CASE EVENT DATE: 20141016
